FAERS Safety Report 5917139-1 (Version None)
Quarter: 2008Q4

REPORT INFORMATION
  Report Type: 
  Country: None (occurrence: None)
  Receive Date: 20081014
  Receipt Date: 20081003
  Transmission Date: 20090506
  Serious: Yes (Other)
  Sender: FDA-Public Use
  Company Number: CA-JNJFOC-20081001118

PATIENT
  Sex: Female
  Weight: 52 kg

DRUGS (4)
  1. REMICADE [Suspect]
     Indication: CROHN'S DISEASE
     Route: 042
  2. REMICADE [Suspect]
     Indication: RHEUMATOID ARTHRITIS
     Route: 042
  3. TYLENOL (CAPLET) [Concomitant]
     Indication: PREMEDICATION
  4. AERIUS [Concomitant]
     Indication: PREMEDICATION

REACTIONS (1)
  - RENAL CANCER [None]
